FAERS Safety Report 19136246 (Version 3)
Quarter: 2023Q2

REPORT INFORMATION
  Report Type: Spontaneous
  Country: US (occurrence: US)
  Receive Date: 20210414
  Receipt Date: 20230504
  Transmission Date: 20230721
  Serious: Yes (Hospitalization, Other)
  Sender: FDA-Public Use
  Company Number: US-GILEAD-2021-0524823

PATIENT
  Age: 64 Year
  Sex: Male
  Weight: 108.84 kg

DRUGS (47)
  1. ATRIPLA [Suspect]
     Active Substance: EFAVIRENZ\EMTRICITABINE\TENOFOVIR DISOPROXIL FUMARATE
     Indication: HIV infection
     Dosage: UNK
     Route: 048
     Dates: start: 2008, end: 2010
  2. ATRIPLA [Suspect]
     Active Substance: EFAVIRENZ\EMTRICITABINE\TENOFOVIR DISOPROXIL FUMARATE
     Dosage: UNK
     Route: 048
     Dates: start: 200905, end: 200906
  3. LISINOPRIL [Concomitant]
     Active Substance: LISINOPRIL
  4. REPAGLINIDE [Concomitant]
     Active Substance: REPAGLINIDE
  5. LATANOPROST [Concomitant]
     Active Substance: LATANOPROST
  6. NORVIR [Concomitant]
     Active Substance: RITONAVIR
  7. PREZCOBIX [Concomitant]
     Active Substance: COBICISTAT\DARUNAVIR ETHANOLATE
  8. PREZISTA [Concomitant]
     Active Substance: DARUNAVIR ETHANOLATE
  9. SYMTUZA [Concomitant]
     Active Substance: COBICISTAT\DARUNAVIR\EMTRICITABINE\TENOFOVIR ALAFENAMIDE
  10. TRIUMEQ [Concomitant]
     Active Substance: ABACAVIR SULFATE\DOLUTEGRAVIR SODIUM\LAMIVUDINE
  11. ACETAMINOPHEN [Concomitant]
     Active Substance: ACETAMINOPHEN
  12. ALLOPURINOL [Concomitant]
     Active Substance: ALLOPURINOL
  13. ANDROGEL [Concomitant]
     Active Substance: TESTOSTERONE
  14. ATORVASTATIN [Concomitant]
     Active Substance: ATORVASTATIN
  15. AZITHROMYCIN [Concomitant]
     Active Substance: AZITHROMYCIN
  16. CEPHALEXIN [Concomitant]
     Active Substance: CEPHALEXIN
  17. CIALIS [Concomitant]
     Active Substance: TADALAFIL
  18. CLINDAMYCIN [Concomitant]
     Active Substance: CLINDAMYCIN
  19. CLOBETASOL [Concomitant]
     Active Substance: CLOBETASOL
  20. COLCRYS [Concomitant]
     Active Substance: COLCHICINE
  21. DESOXIMETASONE [Concomitant]
     Active Substance: DESOXIMETASONE
  22. DICLOFENAC [Concomitant]
     Active Substance: DICLOFENAC
  23. DOXYCYCLINE [Concomitant]
     Active Substance: DOXYCYCLINE
  24. ECONAZOLE [Concomitant]
     Active Substance: ECONAZOLE
  25. FLUOCINONIDE [Concomitant]
     Active Substance: FLUOCINONIDE
  26. FLUVIRIN [INFLUENZA VACCINE INACT SAG 3V] [Concomitant]
  27. GUAIFENESIN [Concomitant]
     Active Substance: GUAIFENESIN
  28. IBUPROFEN [Concomitant]
     Active Substance: IBUPROFEN
  29. INDOMETHACIN [Concomitant]
     Active Substance: INDOMETHACIN
  30. KETOCONAZOLE [Concomitant]
     Active Substance: KETOCONAZOLE
  31. LEVOCETIRIZINE [Concomitant]
     Active Substance: LEVOCETIRIZINE
  32. LYRICA [Concomitant]
     Active Substance: PREGABALIN
  33. MEDROL [Concomitant]
     Active Substance: METHYLPREDNISOLONE
  34. MINOCYCLINE [Concomitant]
     Active Substance: MINOCYCLINE HYDROCHLORIDE
  35. PREDNISONE [Concomitant]
     Active Substance: PREDNISONE
  36. CRESTOR [Concomitant]
     Active Substance: ROSUVASTATIN CALCIUM
  37. SILDENAFIL [Concomitant]
     Active Substance: SILDENAFIL
  38. SULFAMETHOXAZOLE AND TRIMETHOPRIM [Concomitant]
     Active Substance: SULFAMETHOXAZOLE\TRIMETHOPRIM
  39. SUPREP BOWEL PREP [Concomitant]
     Active Substance: MAGNESIUM SULFATE\POTASSIUM SULFATE\SODIUM SULFATE
  40. TEMAZEPAM [Concomitant]
     Active Substance: TEMAZEPAM
  41. TESTIM [Concomitant]
     Active Substance: TESTOSTERONE
  42. TIZANIDINE [Concomitant]
     Active Substance: TIZANIDINE
  43. TRAMADOL [Concomitant]
     Active Substance: TRAMADOL
  44. VIAGRA [Concomitant]
     Active Substance: SILDENAFIL CITRATE
  45. VITAMIN D2 [Concomitant]
     Active Substance: ERGOCALCIFEROL
  46. VITAMIN D3 [Concomitant]
     Active Substance: CHOLECALCIFEROL
  47. XENICAL [Concomitant]
     Active Substance: ORLISTAT

REACTIONS (11)
  - Chronic kidney disease [Not Recovered/Not Resolved]
  - Acute kidney injury [Not Recovered/Not Resolved]
  - Renal impairment [Unknown]
  - Urinary retention [Unknown]
  - Emotional distress [Not Recovered/Not Resolved]
  - Anhedonia [Not Recovered/Not Resolved]
  - Pain [Not Recovered/Not Resolved]
  - Anxiety [Not Recovered/Not Resolved]
  - Anaemia [Recovered/Resolved]
  - Gout [Not Recovered/Not Resolved]
  - Prostatomegaly [Unknown]

NARRATIVE: CASE EVENT DATE: 20080101
